FAERS Safety Report 8023970-1 (Version None)
Quarter: 2012Q1

REPORT INFORMATION
  Report Type: 
  Country: None (occurrence: None)
  Receive Date: 20120105
  Receipt Date: 20111227
  Transmission Date: 20120608
  Serious: Yes (Hospitalization)
  Sender: FDA-Public Use
  Company Number: JP-B.I. PHARMACEUTICALS,INC./RIDGEFIELD-2011-BP-24415YA

PATIENT
  Sex: Male
  Weight: 59.1 kg

DRUGS (19)
  1. ALLOPURINOL [Concomitant]
  2. EBASTEL (EBASTINE) ORODISPERSIBLE CR TABLET [Concomitant]
  3. CRESTOR [Concomitant]
  4. MUCOSOLVAN (AMBROXOL HYDROCHLORIDE) [Concomitant]
     Dates: start: 20110701
  5. AVELOX [Concomitant]
     Route: 048
     Dates: start: 20111007
  6. DIART (AZOSEMIDE) [Concomitant]
  7. PLAVIX [Concomitant]
  8. FLIVAS (NAFTOPIDIL) ORODISPERSIBLE CR TABLET [Concomitant]
     Dates: start: 20110907, end: 20110927
  9. METHYCOBAL (MECOBALAMIN) [Concomitant]
  10. ASPIRIN [Concomitant]
  11. WARFARIN SODIUM [Concomitant]
  12. GASTER (FAMOTIDINE) ORODISPERSIBLE CR TABLET, [Concomitant]
  13. TORSEMIDE [Concomitant]
  14. BAYNAS (RAMATROBAN) [Concomitant]
  15. YODEL S (SENNA EXTRACT) [Concomitant]
  16. TAMSULOSIN HCL [Suspect]
     Indication: BENIGN PROSTATIC HYPERPLASIA
     Dosage: 0.2 MG
     Route: 048
     Dates: start: 20110928, end: 20111008
  17. BISOPROLOL FUMARATE [Concomitant]
  18. CONIEL (BENIDIPINE HYDROCHLORIDE) [Concomitant]
  19. MAGLAX (MAGNESIUM OXIDE) [Concomitant]

REACTIONS (1)
  - ALVEOLITIS ALLERGIC [None]
